FAERS Safety Report 9509323 (Version 2)
Quarter: 2013Q3

REPORT INFORMATION
  Report Type: Spontaneous
  Country: US (occurrence: US)
  Receive Date: 20130909
  Receipt Date: 20130909
  Transmission Date: 20140515
  Serious: Yes (Other)
  Sender: FDA-Public Use
  Company Number: US-BRISTOL-MYERS SQUIBB COMPANY-17309600

PATIENT
  Age: 27 Year
  Sex: Male

DRUGS (3)
  1. ABILIFY [Suspect]
     Indication: BIPOLAR DISORDER
     Dosage: STARTED AT 5 MG AND DOSE INCREASED TO 10 MG
     Dates: end: 20130101
  2. RISPERDAL [Concomitant]
  3. LAMICTAL [Concomitant]

REACTIONS (4)
  - Depression [Unknown]
  - Abnormal behaviour [Unknown]
  - Suicidal ideation [Unknown]
  - Drug ineffective [Unknown]
